FAERS Safety Report 7503538-3 (Version None)
Quarter: 2011Q1

REPORT INFORMATION
  Report Type: 
  Country: None (occurrence: None)
  Receive Date: 20110322
  Receipt Date: 20110210
  Transmission Date: 20110831
  Serious: Yes (Hospitalization)
  Sender: FDA-Public Use
  Company Number: UTC-005221

PATIENT
  Age: 49 Year
  Sex: Male
  Weight: 55.3 kg

DRUGS (3)
  1. ADCIRCA (WARFARIN SODIUM) [Concomitant]
  2. DIURETICS (DIURETICS) [Concomitant]
  3. TYVASO [Suspect]
     Indication: PULMONARY HYPERTENSION
     Dosage: 216 MCG (54 MCG, 4 IN 1 D), INHALATION
     Route: 055
     Dates: start: 20100909

REACTIONS (1)
  - PNEUMONIA [None]
